FAERS Safety Report 5200081-1 (Version None)
Quarter: 2007Q1

REPORT INFORMATION
  Report Type: 
  Country: None (occurrence: None)
  Receive Date: 20070105
  Receipt Date: 20070102
  Transmission Date: 20070707
  Serious: Yes (Hospitalization)
  Sender: FDA-Public Use
  Company Number: US-GLAXOSMITHKLINE-A0633253A

PATIENT
  Age: 48 Year
  Sex: Female

DRUGS (7)
  1. COREG [Suspect]
     Indication: CARDIAC FAILURE CONGESTIVE
     Dosage: 6.25MG TWICE PER DAY
     Route: 048
     Dates: start: 20050301
  2. COUMADIN [Concomitant]
  3. ALDACTONE [Concomitant]
  4. LASIX [Concomitant]
  5. K-DUR 10 [Concomitant]
  6. LISINOPRIL [Concomitant]
  7. LEVOXYL [Concomitant]

REACTIONS (8)
  - ASTHENIA [None]
  - ATRIAL FIBRILLATION [None]
  - COLD SWEAT [None]
  - HYPERHIDROSIS [None]
  - LOSS OF CONSCIOUSNESS [None]
  - NASOPHARYNGITIS [None]
  - VOMITING [None]
  - WEIGHT INCREASED [None]
